FAERS Safety Report 8090860-8 (Version None)
Quarter: 2012Q1

REPORT INFORMATION
  Report Type: 
  Country: None (occurrence: None)
  Receive Date: 20120125
  Receipt Date: 20120110
  Transmission Date: 20120608
  Serious: Yes (Other)
  Sender: FDA-Public Use
  Company Number: US-1189113

PATIENT
  Age: 74 Year
  Sex: Male
  Weight: 79.3795 kg

DRUGS (8)
  1. BSS [Suspect]
  2. NEVANAC [Suspect]
     Indication: CATARACT OPERATION
     Dosage: (OPHTHALMIC)
     Route: 047
  3. PREDNISOLONE ACETATE [Suspect]
     Indication: CATARACT OPERATION
     Dosage: (OPHTHALMIC)
     Route: 047
  4. TETRACAINE POLYGYL STERILE OPHTHALMIC SOLUTION [Suspect]
     Indication: CATARACT OPERATION
     Dosage: (OPHTHALMIC)
     Route: 047
     Dates: start: 20111117, end: 20111117
  5. VIGAMOX [Suspect]
     Indication: CATARACT OPERATION
     Dosage: (OPHTHALMIC)
     Route: 047
  6. POVIDONE IODINE [Concomitant]
  7. BSS [Suspect]
     Indication: CATARACT OPERATION
     Dosage: (INTRAOCULAR), (INTRAOCULAR)
     Route: 031
     Dates: start: 20111117, end: 20111117
  8. BSS [Suspect]
     Indication: CATARACT OPERATION
     Dosage: (INTRAOCULAR), (INTRAOCULAR)
     Route: 031
     Dates: start: 20111117, end: 20111117

REACTIONS (5)
  - OFF LABEL USE [None]
  - POST PROCEDURAL INFECTION [None]
  - TOXIC ANTERIOR SEGMENT SYNDROME [None]
  - WRONG TECHNIQUE IN DRUG USAGE PROCESS [None]
  - BACTERIAL INFECTION [None]
